FAERS Safety Report 7757848-5 (Version None)
Quarter: 2011Q3

REPORT INFORMATION
  Report Type: 
  Country: None (occurrence: None)
  Receive Date: 20110918
  Receipt Date: 20110913
  Transmission Date: 20111222
  Serious: Yes (Hospitalization)
  Sender: FDA-Public Use
  Company Number: US-BRISTOL-MYERS SQUIBB COMPANY-15988132

PATIENT
  Age: 57 Year
  Sex: Male
  Weight: 104 kg

DRUGS (7)
  1. TYLENOL-500 [Concomitant]
  2. DOCUSATE SODIUM [Concomitant]
  3. OXYCODONE HCL [Concomitant]
  4. MORPHINE [Concomitant]
  5. ZOLPIDEM [Concomitant]
  6. IPILIMUMAB [Suspect]
     Indication: MALIGNANT MELANOMA
     Dosage: 10MG/KG IV OVER 90 MIN (CYCL 1-4) Q 21 DAYS, CYCL 5+ Q12 WEEKS).CYCLE 2.INTERRUPT ON 01AUG11.
     Route: 042
     Dates: start: 20110708
  7. BISACODYL [Concomitant]

REACTIONS (3)
  - PULMONARY EMBOLISM [None]
  - PULMONARY INFARCTION [None]
  - PYREXIA [None]
